FAERS Safety Report 8318117-8 (Version None)
Quarter: 2012Q2

REPORT INFORMATION
  Report Type: 
  Country: None (occurrence: None)
  Receive Date: 20120425
  Receipt Date: 20120411
  Transmission Date: 20120825
  Serious: Yes (Other)
  Sender: FDA-Public Use
  Company Number: 2012HGS-003529

PATIENT
  Age: 42 Year
  Sex: Female
  Weight: 77.4 kg

DRUGS (7)
  1. FLUCONAZOLE [Concomitant]
  2. IBUPROFEN TABLETS [Concomitant]
  3. OXYCONTIN (OXYCODONE HYDROCHLORIDE) (OXYCODONE HYDROCHLORIDE) [Concomitant]
  4. MODAFINIL (MODAFINIL) (MODAFINIL) [Concomitant]
  5. BENLYSTA [Suspect]
     Dosage: 1 IN 1 M, INTRAVENOUS DRIP
     Route: 041
     Dates: start: 20120118
  6. NEXIUM (ESOMEPARZOLE MAGNESIUM) (ESOMEPRAZOLE MAGNESIUM) [Concomitant]
  7. MELOXICAM [Concomitant]

REACTIONS (2)
  - LYMPHADENOPATHY [None]
  - ANXIETY [None]
